FAERS Safety Report 6434986-0 (Version None)
Quarter: 2009Q4

REPORT INFORMATION
  Report Type: 
  Country: None (occurrence: None)
  Receive Date: 20091109
  Receipt Date: 20091109
  Transmission Date: 20100525
  Serious: Yes (Other)
  Sender: FDA-Public Use
  Company Number: None

PATIENT
  Age: 46 Year
  Sex: Female
  Weight: 63.5036 kg

DRUGS (1)
  1. TAMIFLU [Suspect]
     Indication: INFLUENZA
     Dosage: 75 MG TWICE DAILY 5 DAYS
     Dates: start: 20091026, end: 20091027

REACTIONS (2)
  - ASTHENIA [None]
  - HYPERSENSITIVITY [None]
